FAERS Safety Report 19214809 (Version 1)
Quarter: 2021Q2

REPORT INFORMATION
  Report Type: Spontaneous
  Country: US (occurrence: US)
  Receive Date: 20210505
  Receipt Date: 20210505
  Transmission Date: 20210717
  Serious: Yes (Other)
  Sender: FDA-Public Use
  Company Number: US-LUPIN PHARMACEUTICALS INC.-2021-06063

PATIENT
  Age: 64 Year
  Sex: Female

DRUGS (4)
  1. VORICONAZOLE. [Suspect]
     Active Substance: VORICONAZOLE
     Indication: ACANTHAMOEBA KERATITIS
     Dosage: UNK
     Route: 048
  2. POLYHEXAMETHYLENE BIGUANIDE HYDROCHLORIDE [Suspect]
     Active Substance: POLIHEXANIDE HYDROCHLORIDE
     Indication: ACANTHAMOEBA KERATITIS
     Dosage: UNK
     Route: 065
  3. CHLORHEXIDINE [Suspect]
     Active Substance: CHLORHEXIDINE
     Indication: ACANTHAMOEBA KERATITIS
     Dosage: UNK
     Route: 065
  4. MILTEFOSINE [Concomitant]
     Active Substance: MILTEFOSINE
     Indication: ACANTHAMOEBA KERATITIS
     Dosage: 50 MILLIGRAM, TID
     Route: 048

REACTIONS (1)
  - Drug ineffective [Unknown]
